FAERS Safety Report 6574662-7 (Version None)
Quarter: 2010Q1

REPORT INFORMATION
  Report Type: 
  Country: None (occurrence: None)
  Receive Date: 20100209
  Receipt Date: 20100202
  Transmission Date: 20100710
  Serious: Yes (Death, Life-Threatening, Hospitalization)
  Sender: FDA-Public Use
  Company Number: GR-MPIJNJ-2010-00991

PATIENT

DRUGS (3)
  1. VELCADE [Suspect]
     Indication: NON-SMALL CELL LUNG CANCER
     Dosage: 1.8 MG, UNK
     Route: 042
     Dates: start: 20091217, end: 20100120
  2. GEMCITABINE HCL [Suspect]
     Indication: NON-SMALL CELL LUNG CANCER
     Dosage: 1800 MG, UNK
     Route: 042
     Dates: start: 20100120, end: 20100120
  3. CISPLATIN [Suspect]
     Indication: NON-SMALL CELL LUNG CANCER
     Dosage: 126 MG, UNK
     Route: 042
     Dates: start: 20100113, end: 20100113

REACTIONS (7)
  - ANAEMIA [None]
  - EPISTAXIS [None]
  - HAEMORRHAGE URINARY TRACT [None]
  - NEUTROPENIA [None]
  - RESPIRATORY FAILURE [None]
  - RESPIRATORY TRACT HAEMORRHAGE [None]
  - THROMBOCYTOPENIA [None]
